FAERS Safety Report 4627955-4 (Version None)
Quarter: 2005Q2

REPORT INFORMATION
  Report Type: 
  Country: None (occurrence: None)
  Receive Date: 20050404
  Receipt Date: 20050404
  Transmission Date: 20051028
  Serious: Yes (Death)
  Sender: FDA-Public Use
  Company Number: None

PATIENT
  Age: 76 Year
  Sex: Male
  Weight: 98.8842 kg

DRUGS (1)
  1. LOVENOX [Suspect]
     Indication: ATRIAL FIBRILLATION
     Dosage: 100MG   TWICE DAILY  SUBCUTANEO
     Route: 058
     Dates: start: 20050202, end: 20050306

REACTIONS (2)
  - MULTI-ORGAN FAILURE [None]
  - UPPER GASTROINTESTINAL HAEMORRHAGE [None]
